FAERS Safety Report 11863887 (Version 2)
Quarter: 2016Q1

REPORT INFORMATION
  Report Type: Spontaneous
  Country: FR (occurrence: FR)
  Receive Date: 20151223
  Receipt Date: 20160112
  Transmission Date: 20160526
  Serious: Yes (Other)
  Sender: FDA-Public Use
  Company Number: FR-PFIZER INC-2015451762

PATIENT
  Age: 22 Year
  Sex: Female

DRUGS (3)
  1. MIGRALGINE [Suspect]
     Active Substance: AMYLOCAINE HYDROCHLORIDE\ANTIPYRINE\CAFFEINE\CODEINE
     Dosage: 4 DF, SINGLE
     Route: 048
     Dates: start: 20151126, end: 20151126
  2. ADVIL [Suspect]
     Active Substance: IBUPROFEN
     Dosage: 2400 MG, SINGLE
     Route: 048
     Dates: start: 20151126, end: 20151126
  3. ZOLMITRIPTAN. [Suspect]
     Active Substance: ZOLMITRIPTAN
     Dosage: 10 MG, SINGLE
     Route: 048
     Dates: start: 20151126, end: 20151126

REACTIONS (8)
  - Incorrect dose administered [Recovered/Resolved]
  - Headache [Recovered/Resolved]
  - Vertigo [Recovered/Resolved]
  - Medication error [Recovered/Resolved]
  - Overdose [Recovered/Resolved]
  - Dizziness [Recovered/Resolved]
  - Abdominal pain [Recovered/Resolved]
  - Tachycardia [Recovered/Resolved]

NARRATIVE: CASE EVENT DATE: 20151126
